FAERS Safety Report 4289717-X (Version None)
Quarter: 2004Q1

REPORT INFORMATION
  Report Type: 
  Country: None (occurrence: None)
  Receive Date: 20040126
  Receipt Date: 20021223
  Transmission Date: 20041129
  Serious: No
  Sender: FDA-Public Use
  Company Number: 02P-163-0203963-00

PATIENT
  Age: 60 Year
  Sex: Male

DRUGS (7)
  1. TERAZOSIN HYDROCHLORIDE (HYTRIN) (TERAZOSIN HYDROCHLORIDE) (TERAZOSIN [Suspect]
     Indication: DRUG INTERACTION
     Dosage: SEE IMAGE
     Dates: start: 20021001, end: 20021003
  2. TERAZOSIN HYDROCHLORIDE (HYTRIN) (TERAZOSIN HYDROCHLORIDE) (TERAZOSIN [Suspect]
     Indication: DRUG INTERACTION
     Dosage: SEE IMAGE
     Dates: start: 20021007, end: 20021010
  3. TERAZOSIN HYDROCHLORIDE (HYTRIN) (TERAZOSIN HYDROCHLORIDE) (TERAZOSIN [Suspect]
     Indication: DRUG INTERACTION
     Dosage: SEE IMAGE
     Dates: start: 20021004, end: 20021016
  4. TERAZOSIN HYDROCHLORIDE (HYTRIN) (TERAZOSIN HYDROCHLORIDE) (TERAZOSIN [Suspect]
     Indication: DRUG INTERACTION
     Dosage: SEE IMAGE
     Dates: start: 20021011, end: 20021022
  5. VARDENAFIL [Suspect]
     Indication: DRUG INTERACTION
     Dosage: 20 MG, ORAL
     Route: 048
     Dates: start: 20021015, end: 20021015
  6. VARDENAFIL [Suspect]
     Indication: DRUG INTERACTION
     Dosage: 20 MG, ORAL
     Route: 048
     Dates: start: 20021022, end: 20021022
  7. PLACEBO [Suspect]
     Indication: DRUG INTERACTION
     Dates: start: 20021019, end: 20021019

REACTIONS (2)
  - ORTHOSTATIC HYPOTENSION [None]
  - SOMNOLENCE [None]
